FAERS Safety Report 9858842 (Version 1)
Quarter: 2014Q1

REPORT INFORMATION
  Report Type: Report from Study
  Country: CA (occurrence: CA)
  Receive Date: 20140131
  Receipt Date: 20140131
  Transmission Date: 20141002
  Serious: Yes (Death, Hospitalization)
  Sender: FDA-Public Use
  Company Number: CA-ABBVIE-14P-028-1195131-00

PATIENT
  Sex: Male
  Weight: 59.02 kg

DRUGS (2)
  1. KALETRA 200/50 [Suspect]
     Indication: ANTIRETROVIRAL THERAPY
     Dosage: 200 MG/ 50 MG
     Route: 048
  2. KIVEXA [Concomitant]
     Indication: HIV TEST POSITIVE
     Dosage: 600/ 300 UNSPECIFIED UNITS
     Route: 048

REACTIONS (3)
  - Hepatitis C [Fatal]
  - Hepatic cirrhosis [Fatal]
  - Cachexia [Fatal]
